FAERS Safety Report 11427438 (Version 1)
Quarter: 2015Q3

REPORT INFORMATION
  Report Type: Spontaneous
  Country: US (occurrence: US)
  Receive Date: 20150827
  Receipt Date: 20150827
  Transmission Date: 20151125
  Serious: No
  Sender: FDA-Public Use
  Company Number: US-SA-2015SA003707

PATIENT
  Age: 34 Year
  Sex: Male

DRUGS (2)
  1. FABRAZYME [Suspect]
     Active Substance: AGALSIDASE BETA
     Indication: FABRY^S DISEASE
     Route: 041
     Dates: start: 20140318
  2. ACETAMINOPHEN. [Concomitant]
     Active Substance: ACETAMINOPHEN
     Indication: PREMEDICATION

REACTIONS (6)
  - Unevaluable event [Unknown]
  - Product contamination [Unknown]
  - Tremor [Unknown]
  - Infusion related reaction [Unknown]
  - Malaise [Unknown]
  - Flushing [Unknown]

NARRATIVE: CASE EVENT DATE: 20141209
